FAERS Safety Report 6601750-9 (Version None)
Quarter: 2010Q1

REPORT INFORMATION
  Report Type: 
  Country: None (occurrence: None)
  Receive Date: 20100225
  Receipt Date: 20081204
  Transmission Date: 20100710
  Serious: No
  Sender: FDA-Public Use
  Company Number: US-BRISTOL-MYERS SQUIBB COMPANY-14431787

PATIENT
  Sex: Female

DRUGS (1)
  1. ORENCIA [Suspect]
     Dates: start: 20080801

REACTIONS (4)
  - DIARRHOEA [None]
  - DYSPEPSIA [None]
  - ORAL HERPES [None]
  - OROPHARYNGEAL PAIN [None]
